FAERS Safety Report 23399331 (Version 1)
Quarter: 2024Q1

REPORT INFORMATION
  Report Type: Spontaneous
  Country: JP (occurrence: JP)
  Receive Date: 20240113
  Receipt Date: 20240113
  Transmission Date: 20240410
  Serious: Yes (Other)
  Sender: FDA-Public Use
  Company Number: JP-ABBVIE-5576183

PATIENT
  Age: 83 Year
  Sex: Female

DRUGS (5)
  1. ALPHAGAN P [Suspect]
     Active Substance: BRIMONIDINE TARTRATE
     Indication: Glaucoma
     Route: 047
     Dates: start: 20201020
  2. ALPHAGAN P [Suspect]
     Active Substance: BRIMONIDINE TARTRATE
     Indication: Open angle glaucoma
     Route: 047
     Dates: start: 20210802
  3. AZOPT [Concomitant]
     Active Substance: BRINZOLAMIDE
     Indication: Open angle glaucoma
  4. TAPROS [Concomitant]
     Indication: Product used for unknown indication
     Dates: start: 20210712
  5. BRIMONIDINE TARTRATE\BRINZOLAMIDE [Concomitant]
     Active Substance: BRIMONIDINE TARTRATE\BRINZOLAMIDE
     Indication: Open angle glaucoma

REACTIONS (2)
  - Trabeculectomy [Unknown]
  - Corneal opacity [Recovering/Resolving]

NARRATIVE: CASE EVENT DATE: 20230619
